FAERS Safety Report 5581898-0 (Version None)
Quarter: 2008Q1

REPORT INFORMATION
  Report Type: 
  Country: None (occurrence: None)
  Receive Date: 20080104
  Receipt Date: 20071228
  Transmission Date: 20080703
  Serious: Yes (Other)
  Sender: FDA-Public Use
  Company Number: US-PFIZER INC-2007108854

PATIENT
  Sex: Male

DRUGS (4)
  1. SUTENT [Suspect]
     Indication: ANGIOSARCOMA
     Route: 048
  2. TOPROL-XL [Concomitant]
  3. PRILOSEC [Concomitant]
  4. ATIVAN [Concomitant]

REACTIONS (1)
  - UMBILICAL HERNIA [None]
